FAERS Safety Report 18278157 (Version 1)
Quarter: 2020Q3

REPORT INFORMATION
  Report Type: Spontaneous
  Country: DK (occurrence: DK)
  Receive Date: 20200917
  Receipt Date: 20200917
  Transmission Date: 20201103
  Serious: Yes (Hospitalization)
  Sender: FDA-Public Use
  Company Number: DK-ANIPHARMA-2020-DK-000008

PATIENT
  Age: 65 Year
  Sex: Female

DRUGS (3)
  1. CEFUROXIME AXETIL (NON?SPECIFIC) [Suspect]
     Active Substance: CEFUROXIME AXETIL
     Indication: PRODUCT USED FOR UNKNOWN INDICATION
  2. DIMETHOXYPHENYLPENICILLIN [Suspect]
     Active Substance: METHICILLIN
     Indication: PRODUCT USED FOR UNKNOWN INDICATION
  3. FLUCONAZOLE TABLETS (NON?SPECIFIC) [Suspect]
     Active Substance: FLUCONAZOLE
     Indication: PRODUCT USED FOR UNKNOWN INDICATION

REACTIONS (1)
  - Linear IgA disease [Recovered/Resolved]
